FAERS Safety Report 20081752 (Version 1)
Quarter: 2021Q4

REPORT INFORMATION
  Report Type: Spontaneous
  Country: CN (occurrence: None)
  Receive Date: 20211117
  Receipt Date: 20211117
  Transmission Date: 20220303
  Serious: Yes (Other)
  Sender: FDA-Public Use
  Company Number: CN-ROCHE-2956201

PATIENT
  Age: 60 Year
  Sex: Female

DRUGS (16)
  1. MABTHERA [Suspect]
     Active Substance: RITUXIMAB
     Indication: Follicular lymphoma
     Dosage: RCHOP FOR 6 CYCLES, ON DAY 0
     Route: 065
     Dates: start: 201812, end: 201906
  2. MABTHERA [Suspect]
     Active Substance: RITUXIMAB
     Dosage: R2 FOR 9 CYCLES, ON DAY 0
     Route: 065
     Dates: start: 201907, end: 202011
  3. MABTHERA [Suspect]
     Active Substance: RITUXIMAB
     Dosage: BR FOR 3 CYCLES, ON DAY 0
     Route: 065
     Dates: start: 202012, end: 202106
  4. MABTHERA [Suspect]
     Active Substance: RITUXIMAB
     Dosage: R-GEM0X FOR 2 CYCLES, ON DAY 0
     Route: 065
     Dates: start: 202107
  5. GAZYVA [Suspect]
     Active Substance: OBINUTUZUMAB
     Indication: Follicular lymphoma
     Dosage: G-DHAP REGIMEN, ON DAY 1 AND 8
     Route: 042
  6. PIRARUBICIN [Concomitant]
     Active Substance: PIRARUBICIN
     Indication: Follicular lymphoma
     Dosage: RCHOP FOR 6 CYCLES, ON DAY 1
     Dates: start: 201812, end: 201906
  7. VINDESINE [Concomitant]
     Active Substance: VINDESINE
     Indication: Follicular lymphoma
     Dosage: RCHOP FOR 6 CYCLES, ON DAY 1
     Dates: start: 201812, end: 201906
  8. CYCLOPHOSPHAMIDE [Concomitant]
     Active Substance: CYCLOPHOSPHAMIDE
     Indication: Follicular lymphoma
     Dosage: RCHOP FOR 6 CYCLES, ON DAY 1
     Dates: start: 201812, end: 201906
  9. PREDNISOLONE [Concomitant]
     Active Substance: PREDNISOLONE
     Indication: Follicular lymphoma
     Dosage: RCHOP FOR 6 CYCLES, ON DAY 0-4
     Dates: start: 201812, end: 201906
  10. LENALIDOMIDE [Concomitant]
     Active Substance: LENALIDOMIDE
     Indication: Follicular lymphoma
     Dosage: R2 FOR 9 CYCLES, ON DAY 1-21
     Dates: start: 201907, end: 202011
  11. BENDAMUSTINE [Concomitant]
     Active Substance: BENDAMUSTINE
     Indication: Follicular lymphoma
     Dosage: BR FOR 3 CYCLES, ON DAY 1-2, 75 MG/M2, 1.41 M2
     Dates: start: 202012, end: 202106
  12. GEMCITABINE [Concomitant]
     Active Substance: GEMCITABINE
     Indication: Follicular lymphoma
     Dosage: R-GEM0X FOR 2 CYCLES, ON DAY 1
     Dates: start: 202107, end: 202108
  13. OXALIPLATIN [Concomitant]
     Active Substance: OXALIPLATIN
     Indication: Follicular lymphoma
     Dosage: R-GEM0X FOR 2 CYCLES, ON DAY 1
     Dates: start: 202107, end: 202108
  14. DEXAMETHASONE [Concomitant]
     Active Substance: DEXAMETHASONE
     Indication: Follicular lymphoma
     Dosage: G-DHAP REGIMEN, ON DAY 1-4
  15. CISPLATIN [Concomitant]
     Active Substance: CISPLATIN
     Indication: Follicular lymphoma
     Dosage: G-DHAP REGIMEN, ON DAY 1
  16. CYTARABINE [Concomitant]
     Active Substance: CYTARABINE
     Indication: Follicular lymphoma
     Dosage: G-DHAP REGIMEN, 2 G/M2 ON DAY 2

REACTIONS (3)
  - Myelosuppression [Recovering/Resolving]
  - Gastrointestinal haemorrhage [Unknown]
  - Pneumonia fungal [Unknown]
